FAERS Safety Report 24286170 (Version 1)
Quarter: 2024Q3

REPORT INFORMATION
  Report Type: Spontaneous
  Country: CA (occurrence: CA)
  Receive Date: 20240905
  Receipt Date: 20240905
  Transmission Date: 20241017
  Serious: Yes (Other)
  Sender: AMGEN
  Company Number: CA-AMGEN-CANSP2024172650

PATIENT
  Age: 29 Year
  Sex: Male

DRUGS (11)
  1. FILGRASTIM [Suspect]
     Active Substance: FILGRASTIM
     Indication: Familial haemophagocytic lymphohistiocytosis
     Route: 065
  2. FILGRASTIM [Suspect]
     Active Substance: FILGRASTIM
     Indication: Off label use
  3. PREDNISONE [Concomitant]
     Active Substance: PREDNISONE
     Indication: Graft versus host disease
  4. ANAKINRA [Concomitant]
     Active Substance: ANAKINRA
  5. CYCLOSPORINE [Concomitant]
     Active Substance: CYCLOSPORINE
  6. ELTROMBOPAG [Concomitant]
     Active Substance: ELTROMBOPAG
  7. TOCILIZUMAB [Concomitant]
     Active Substance: TOCILIZUMAB
  8. ALEMTUZUMAB [Concomitant]
     Active Substance: ALEMTUZUMAB
  9. FLUDARABINE [Concomitant]
     Active Substance: FLUDARABINE PHOSPHATE
  10. MELPHALAN HYDROCHLORIDE [Concomitant]
     Active Substance: MELPHALAN\MELPHALAN HYDROCHLORIDE
  11. TACROLIMUS [Concomitant]
     Active Substance: TACROLIMUS
     Indication: Graft versus host disease

REACTIONS (5)
  - Familial haemophagocytic lymphohistiocytosis [Recovered/Resolved]
  - Graft versus host disease [Recovering/Resolving]
  - Off label use [Unknown]
  - Dry eye [Unknown]
  - Lichenoid keratosis [Recovering/Resolving]
